FAERS Safety Report 7489937-7 (Version None)
Quarter: 2011Q2

REPORT INFORMATION
  Report Type: 
  Country: None (occurrence: None)
  Receive Date: 20110519
  Receipt Date: 20110516
  Transmission Date: 20111010
  Serious: Yes (Other)
  Sender: FDA-Public Use
  Company Number: US-BAYER-2011-042033

PATIENT
  Sex: Female

DRUGS (2)
  1. DROSPIRENONE AND ETHINYL ESTRADIOL [Suspect]
     Dosage: UNK
     Dates: start: 20090101
  2. YAZ [Suspect]
     Dosage: UNK
     Dates: start: 20090101

REACTIONS (4)
  - CHOLECYSTECTOMY [None]
  - APPENDICECTOMY [None]
  - PAIN [None]
  - INJURY [None]
